FAERS Safety Report 6259330-3 (Version None)
Quarter: 2009Q3

REPORT INFORMATION
  Report Type: 
  Country: None (occurrence: None)
  Receive Date: 20090706
  Receipt Date: 20090618
  Transmission Date: 20100115
  Serious: Yes (Hospitalization)
  Sender: FDA-Public Use
  Company Number: A-US2009-25341

PATIENT
  Age: 27 Year
  Sex: Female

DRUGS (12)
  1. TRACLEER [Suspect]
     Indication: PULMONARY ARTERIAL HYPERTENSION
     Dosage: 125 MG, BID, ORAL
     Route: 048
     Dates: start: 20000313
  2. PREDNISONE TAB [Suspect]
     Dosage: 5 MG, QD,
  3. SILDENAFIL [Concomitant]
  4. OXYGEN (OXYGEN) [Concomitant]
  5. OMEPRAZOLE [Concomitant]
  6. CALCIUM (CALCIUM CARBONATE, CALCIUM GLUBIONATE, CALCIUM GLUCONATE) [Concomitant]
  7. IRON (IRON) [Concomitant]
  8. DIFENHYDRAMIN (DIPHENHYDRAMINE) [Concomitant]
  9. GUAIFENESIN [Concomitant]
  10. PANTOPRAZOLE SODIUM [Concomitant]
  11. ALMIN (ALUMINIUM GLYCINATE) [Concomitant]
  12. CEPACOL (CETYLPYRIDINIUM CHLORIDE) [Concomitant]

REACTIONS (20)
  - CONDITION AGGRAVATED [None]
  - CONNECTIVE TISSUE DISORDER [None]
  - COUGH [None]
  - DRUG TOXICITY [None]
  - DYSPNOEA [None]
  - GASTROOESOPHAGEAL REFLUX DISEASE [None]
  - HAEMOGLOBIN DECREASED [None]
  - HYPOKALAEMIA [None]
  - HYPOXIA [None]
  - IMMUNODEFICIENCY [None]
  - JUVENILE ARTHRITIS [None]
  - LUNG NEOPLASM [None]
  - LYMPHADENOPATHY [None]
  - PERICARDIAL EFFUSION [None]
  - PLEURAL EFFUSION [None]
  - PULMONARY ARTERIAL HYPERTENSION [None]
  - PYREXIA [None]
  - RASH [None]
  - TACHYCARDIA [None]
  - WHEEZING [None]
